FAERS Safety Report 7990650-8 (Version None)
Quarter: 2011Q4

REPORT INFORMATION
  Report Type: 
  Country: None (occurrence: None)
  Receive Date: 20111219
  Receipt Date: 20111214
  Transmission Date: 20120403
  Serious: Yes (Hospitalization)
  Sender: FDA-Public Use
  Company Number: US-BAYER-2011-106478

PATIENT
  Age: 16 Year
  Sex: Female
  Weight: 54.24 kg

DRUGS (9)
  1. I.V. SOLUTIONS [Concomitant]
  2. PRIMOVIST [Suspect]
     Indication: LIVER SCAN
     Dosage: 5 ML, QD
     Route: 042
     Dates: start: 20110717, end: 20110717
  3. DILAUDID [Concomitant]
     Indication: PAIN
  4. OXYCODONE HCL [Concomitant]
     Dosage: 7.5 MG, Q4HR
  5. ZOSYN [Concomitant]
     Dosage: 3.375 G, Q6H
     Route: 042
  6. URSODIOL [Concomitant]
     Dosage: 300 MG, BID
     Dates: start: 20110727
  7. MIRALAX [Concomitant]
     Indication: CONSTIPATION
     Dosage: 17 G, QD
  8. TACROLIMUS [Concomitant]
     Dosage: 1 MG, BID
     Dates: start: 20110726
  9. OXYCODONE HCL [Concomitant]
     Indication: PAIN
     Dosage: 5 MG, Q4HR

REACTIONS (1)
  - THERAPEUTIC EMBOLISATION [None]
